FAERS Safety Report 4285838-6 (Version None)
Quarter: 2004Q1

REPORT INFORMATION
  Report Type: 
  Country: None (occurrence: None)
  Receive Date: 20040203
  Receipt Date: 20040121
  Transmission Date: 20041129
  Serious: Yes (Other)
  Sender: FDA-Public Use
  Company Number: 12483608

PATIENT
  Age: 60 Year
  Sex: Male

DRUGS (5)
  1. ATAZANAVIR [Suspect]
     Indication: HIV INFECTION
     Dosage: 300 MILLIGRAM, 1 DAY
  2. VIDEX [Suspect]
     Indication: HIV INFECTION
     Dosage: 400 MILLIGRAM 1 DAY
  3. ZERIT [Suspect]
     Indication: HIV INFECTION
     Dosage: 40 MILLIGRAM 2/1 DAY
  4. NORVIR [Suspect]
     Indication: HIV INFECTION
     Dosage: 100 MILLIGRAM, 1 DAY
  5. TENOFOVIR [Suspect]
     Indication: HIV INFECTION
     Dosage: 300 MILLIGRAM 1 DAY

REACTIONS (10)
  - BIOPSY KIDNEY ABNORMAL [None]
  - FANCONI SYNDROME ACQUIRED [None]
  - HAEMATURIA [None]
  - HYPERTENSION [None]
  - INFLAMMATION [None]
  - NEPHRITIS [None]
  - PROTEINURIA [None]
  - RENAL FAILURE ACUTE [None]
  - RENAL TUBULAR NECROSIS [None]
  - VIRAL INFECTION [None]
